FAERS Safety Report 24122372 (Version 6)
Quarter: 2025Q2

REPORT INFORMATION
  Report Type: Report from Study
  Country: US (occurrence: US)
  Receive Date: 20240723
  Receipt Date: 20250524
  Transmission Date: 20250717
  Serious: Yes (Hospitalization, Other)
  Sender: ABBVIE
  Company Number: US-ABBVIE-5842334

PATIENT
  Age: 69 Year
  Sex: Female
  Weight: 48 kg

DRUGS (3)
  1. HUMIRA [Suspect]
     Active Substance: ADALIMUMAB
     Indication: Psoriatic arthropathy
     Route: 058
     Dates: start: 20210825, end: 20240715
  2. BUDESONIDE [Concomitant]
     Active Substance: BUDESONIDE
     Indication: Colitis
     Route: 048
  3. RINVOQ [Suspect]
     Active Substance: UPADACITINIB
     Indication: Rheumatoid arthritis
     Route: 048
     Dates: start: 20240827

REACTIONS (24)
  - Loss of consciousness [Unknown]
  - Joint swelling [Not Recovered/Not Resolved]
  - Pruritus [Not Recovered/Not Resolved]
  - Disorientation [Unknown]
  - Hypotension [Recovered/Resolved]
  - White blood cell count increased [Unknown]
  - Pruritus [Recovered/Resolved]
  - Muscle swelling [Not Recovered/Not Resolved]
  - Erythema [Unknown]
  - Blood urea increased [Unknown]
  - Mean cell haemoglobin increased [Unknown]
  - Red blood cell count increased [Unknown]
  - Dizziness [Unknown]
  - Pain [Unknown]
  - Blood cholesterol increased [Unknown]
  - Blood triglycerides increased [Unknown]
  - Thyroid hormones decreased [Unknown]
  - Fatigue [Unknown]
  - Asthenia [Unknown]
  - Poor quality sleep [Unknown]
  - Night sweats [Unknown]
  - Body temperature fluctuation [Unknown]
  - Joint swelling [Recovered/Resolved]
  - Lupus-like syndrome [Recovered/Resolved]

NARRATIVE: CASE EVENT DATE: 20230601
